FAERS Safety Report 17079920 (Version 1)
Quarter: 2019Q4

REPORT INFORMATION
  Report Type: Spontaneous
  Country: FR (occurrence: FR)
  Receive Date: 20191127
  Receipt Date: 20191127
  Transmission Date: 20200122
  Serious: Yes (Other)
  Sender: FDA-Public Use
  Company Number: FR-GLAXOSMITHKLINE-FR2019209575

PATIENT
  Sex: Female

DRUGS (3)
  1. LAMICTAL [Suspect]
     Active Substance: LAMOTRIGINE
     Dosage: 150 MG, QD
  2. LEVONORGESTREL. [Suspect]
     Active Substance: LEVONORGESTREL
     Indication: CONTRACEPTION
     Dosage: UNK
     Route: 048
  3. LAMICTAL [Suspect]
     Active Substance: LAMOTRIGINE
     Indication: PRODUCT USED FOR UNKNOWN INDICATION
     Dosage: 125 MG
     Dates: start: 2001

REACTIONS (12)
  - Hallucination [Recovered/Resolved]
  - Tremor [Unknown]
  - Depression [Unknown]
  - Autoimmune thyroiditis [Unknown]
  - Back pain [Unknown]
  - Vulvovaginal dryness [Unknown]
  - Diarrhoea [Unknown]
  - Dry mouth [Unknown]
  - Polymenorrhoea [Unknown]
  - Alopecia [Unknown]
  - Fatigue [Unknown]
  - Irritability [Unknown]
